FAERS Safety Report 7091529-9 (Version None)
Quarter: 2010Q4

REPORT INFORMATION
  Report Type: 
  Country: None (occurrence: None)
  Receive Date: 20101109
  Receipt Date: 20101029
  Transmission Date: 20110411
  Serious: Yes (Other)
  Sender: FDA-Public Use
  Company Number: DE-PFIZER INC-2010136453

PATIENT
  Age: 72 Year
  Sex: Male
  Weight: 75 kg

DRUGS (2)
  1. LYRICA [Suspect]
     Indication: ANXIETY
     Route: 048
     Dates: start: 20080401
  2. LYRICA [Suspect]
     Indication: FACIAL PAIN

REACTIONS (2)
  - CARDIAC DISORDER [None]
  - CARDIAC FAILURE [None]
